FAERS Safety Report 7024820-2 (Version None)
Quarter: 2010Q4

REPORT INFORMATION
  Report Type: 
  Country: None (occurrence: None)
  Receive Date: 20101001
  Receipt Date: 20100926
  Transmission Date: 20110411
  Serious: Yes (Other)
  Sender: FDA-Public Use
  Company Number: US-PFIZER INC-2010122008

PATIENT
  Sex: Male
  Weight: 136 kg

DRUGS (6)
  1. CHANTIX [Suspect]
     Indication: SMOKING CESSATION THERAPY
     Dosage: 0.5 MG, UNK
     Route: 048
     Dates: start: 20100801
  2. CYMBALTA [Concomitant]
     Indication: BACK PAIN
     Dosage: 60 MG, 2X/DAY
     Route: 048
  3. DURAGESIC-100 [Concomitant]
     Indication: BACK PAIN
     Dosage: 125 MG, UNK
     Route: 062
  4. NEURONTIN [Concomitant]
     Indication: BACK PAIN
     Dosage: 1800 MG, 2X/DAY
     Route: 048
  5. NEURONTIN [Concomitant]
     Indication: LIMB DISCOMFORT
  6. ACETYLSALICYLIC ACID [Concomitant]
     Dosage: UNK

REACTIONS (3)
  - BLISTER [None]
  - ORAL MUCOSAL EXFOLIATION [None]
  - RASH [None]
